FAERS Safety Report 5187200-0 (Version None)
Quarter: 2006Q4

REPORT INFORMATION
  Report Type: 
  Country: None (occurrence: None)
  Receive Date: 20061211
  Receipt Date: 20061206
  Transmission Date: 20070319
  Serious: Yes (Life-Threatening, Hospitalization, Other)
  Sender: FDA-Public Use
  Company Number: HQWYE564507DEC06

PATIENT
  Age: 50 Year
  Sex: Female

DRUGS (2)
  1. TYGACIL [Suspect]
     Indication: ABDOMINAL INFECTION
     Dosage: 100 MG LOAD, THEN 50 MG EVERY 12 HOURS, INTRAVENOUS
     Route: 042
     Dates: start: 20061101, end: 20061101
  2. CANCIDAS [Concomitant]

REACTIONS (1)
  - HEPATIC ENZYME INCREASED [None]
